FAERS Safety Report 8158350-1 (Version None)
Quarter: 2012Q1

REPORT INFORMATION
  Report Type: 
  Country: None (occurrence: None)
  Receive Date: 20120217
  Receipt Date: 20120202
  Transmission Date: 20120608
  Serious: Yes (Death)
  Sender: FDA-Public Use
  Company Number: 2012020089

PATIENT
  Age: 48 Year
  Sex: Female

DRUGS (5)
  1. CARISOPRODOL [Suspect]
     Dosage: ORAL
     Route: 048
  2. ZOLPIDEM [Suspect]
     Dosage: ORAL
     Route: 048
  3. ONDANSETRON [Suspect]
     Dosage: ORAL
     Route: 048
  4. ACETAMINOPHEN AND HYDROCODONE BITARTRATE [Suspect]
     Dosage: ORAL
     Route: 048
  5. GABAPENTIN [Suspect]
     Dosage: ORAL
     Route: 048

REACTIONS (1)
  - COMPLETED SUICIDE [None]
